FAERS Safety Report 7311848-8 (Version None)
Quarter: 2011Q1

REPORT INFORMATION
  Report Type: 
  Country: None (occurrence: None)
  Receive Date: 20110215
  Receipt Date: 20110215
  Transmission Date: 20110831
  Serious: Yes (Hospitalization)
  Sender: FDA-Public Use
  Company Number: None

PATIENT
  Age: 91 Year
  Sex: Female

DRUGS (10)
  1. SIMVASTATIN [Concomitant]
  2. FISH OIL [Concomitant]
  3. NORVASC [Concomitant]
  4. VIT D [Concomitant]
  5. ANTIOXIDANT [Concomitant]
  6. XALATAN [Concomitant]
  7. PRADAXA [Suspect]
     Indication: CEREBROVASCULAR ACCIDENT
     Dosage: 150MG BID PO RECENT
     Route: 048
  8. CALCETROL [Concomitant]
  9. RYTHMAL [Concomitant]
  10. LOSARTAN POTASSIUM [Concomitant]

REACTIONS (6)
  - HAEMORRHAGE [None]
  - RENAL FAILURE [None]
  - HAEMOGLOBIN DECREASED [None]
  - FAECES DISCOLOURED [None]
  - EROSIVE OESOPHAGITIS [None]
  - GASTRITIS ATROPHIC [None]
